FAERS Safety Report 7628633-X (Version None)
Quarter: 2011Q3

REPORT INFORMATION
  Report Type: 
  Country: None (occurrence: None)
  Receive Date: 20110722
  Receipt Date: 20110714
  Transmission Date: 20111222
  Serious: Yes (Other)
  Sender: FDA-Public Use
  Company Number: US-US-EMD SERONO, INC.-7071565

PATIENT
  Sex: Female

DRUGS (3)
  1. CYMBALTA [Concomitant]
  2. NEURONTIN [Concomitant]
  3. REBIF [Suspect]
     Indication: MULTIPLE SCLEROSIS
     Route: 058
     Dates: start: 20110228

REACTIONS (2)
  - ROTATOR CUFF REPAIR [None]
  - INJECTION SITE DISCOLOURATION [None]
